FAERS Safety Report 18981296 (Version 1)
Quarter: 2021Q1

REPORT INFORMATION
  Report Type: Spontaneous
  Country: CN (occurrence: CN)
  Receive Date: 20210308
  Receipt Date: 20210308
  Transmission Date: 20210420
  Serious: Yes (Other)
  Sender: FDA-Public Use
  Company Number: CN-BAXTER-2021BAX004422

PATIENT
  Age: 43 Year
  Sex: Female
  Weight: 50 kg

DRUGS (8)
  1. 0.9% SODIUM CHLORIDE INJECTION [Suspect]
     Active Substance: SODIUM CHLORIDE
     Indication: MEDICATION DILUTION
     Dosage: CYCLOPHOSPHAMIDE 0.89G + 0.9% SODIUM CHLORIDE 100ML
     Route: 041
     Dates: start: 20210207, end: 20210207
  2. 5% GLUCOSE  INJECTION [Suspect]
     Active Substance: DEXTROSE
     Indication: MEDICATION DILUTION
     Dosage: PIRARUBICIN HYDROCHLORIDE 74 MG + 5% GLUCOSE 250ML
     Route: 041
     Dates: start: 20210207, end: 20210207
  3. 0.9% SODIUM CHLORIDE INJECTION [Suspect]
     Active Substance: SODIUM CHLORIDE
     Dosage: DOSE RE?INTRODUCED, CYCLOPHOSPHAMIDE + 0.9% SODIUM CHLORIDE
     Route: 041
  4. 5% GLUCOSE  INJECTION [Suspect]
     Active Substance: DEXTROSE
     Dosage: DOSE RE?INTRODUCED, PIRARUBICIN HYDROCHLORIDE + 5% GLUCOSE
     Route: 041
  5. ENDOXAN [Suspect]
     Active Substance: CYCLOPHOSPHAMIDE
     Indication: HORMONE RECEPTOR POSITIVE BREAST CANCER
     Dosage: DOSE RE?INTRODUCED, CYCLOPHOSPHAMIDE + 0.9% SODIUM CHLORIDE
     Route: 041
  6. ENDOXAN [Suspect]
     Active Substance: CYCLOPHOSPHAMIDE
     Indication: INVASIVE DUCTAL BREAST CARCINOMA
     Dosage: CYCLOPHOSPHAMIDE 0.89 G + 0.9% SODIUM CHLORIDE 100 ML
     Route: 041
     Dates: start: 20210207, end: 20210207
  7. PIRARUBICIN HYDROCHLORIDE [Suspect]
     Active Substance: PIRARUBICIN HYDROCHLORIDE
     Indication: INVASIVE DUCTAL BREAST CARCINOMA
     Dosage: PIRARUBICIN HYDROCHLORIDE 74 MG + 5% GLUCOSE 250ML
     Route: 041
     Dates: start: 20210207, end: 20210207
  8. PIRARUBICIN HYDROCHLORIDE [Suspect]
     Active Substance: PIRARUBICIN HYDROCHLORIDE
     Indication: HORMONE RECEPTOR POSITIVE BREAST CANCER
     Dosage: DOSE RE?INTRODUCED,  PIRARUBICIN HYDROCHLORIDE + 5% GLUCOSE
     Route: 041

REACTIONS (2)
  - Neutrophil count decreased [Recovering/Resolving]
  - Leukopenia [Recovering/Resolving]

NARRATIVE: CASE EVENT DATE: 20210228
